FAERS Safety Report 4471204-7 (Version None)
Quarter: 2004Q4

REPORT INFORMATION
  Report Type: 
  Country: None (occurrence: None)
  Receive Date: 20041006
  Receipt Date: 20040923
  Transmission Date: 20050328
  Serious: Yes (Other)
  Sender: FDA-Public Use
  Company Number: 2004070246

PATIENT
  Age: 80 Year
  Sex: Male
  Weight: 80 kg

DRUGS (9)
  1. FELDENE [Suspect]
     Indication: BACK PAIN
     Dosage: (20 MG/ML), INTRAMUSCULAR
     Route: 030
     Dates: start: 20040830, end: 20040901
  2. THIOCOLCHICOSIDE (THIOCOCHICOSIDE) [Concomitant]
     Indication: BACK PAIN
     Dosage: INTRAMUSCULAR
     Route: 030
     Dates: start: 20040830, end: 20040901
  3. NAPROXEN [Concomitant]
  4. IDODORBIDE DINITRATE (ISOSORBIDE DINITRATE) [Concomitant]
  5. ATENOLOL [Concomitant]
  6. CILAZAPRIL (CILAZAPRIL) [Concomitant]
  7. SERTRALINE (SERTRALINE) [Concomitant]
  8. CLOXAZOLAM (CLOXAZOLAM) [Concomitant]
  9. DIAZEPAM [Concomitant]

REACTIONS (3)
  - PARAESTHESIA [None]
  - PRURITUS [None]
  - SWELLING FACE [None]
